APPROVED DRUG PRODUCT: CLOZAPINE
Active Ingredient: CLOZAPINE
Strength: 25MG
Dosage Form/Route: TABLET, ORALLY DISINTEGRATING;ORAL
Application: A212923 | Product #002 | TE Code: AB
Applicant: AUROBINDO PHARMA LTD
Approved: Dec 12, 2024 | RLD: No | RS: No | Type: RX